FAERS Safety Report 25536710 (Version 2)
Quarter: 2025Q4

REPORT INFORMATION
  Report Type: Spontaneous
  Country: EU (occurrence: EU)
  Receive Date: 20250709
  Receipt Date: 20251119
  Transmission Date: 20260118
  Serious: Yes (Hospitalization, Other)
  Sender: CELLTRION
  Company Number: None

PATIENT

DRUGS (7)
  1. INFLIXIMAB [Suspect]
     Active Substance: INFLIXIMAB
     Indication: Sarcoidosis
     Dosage: 7.5 MG/KG, EVERY 1 MONTH
     Route: 042
     Dates: start: 20240917, end: 20250123
  2. PREDNISONE [Suspect]
     Active Substance: PREDNISONE
     Indication: Sarcoidosis
     Dosage: 60 MG, 1 EVERY 1 DAY
     Route: 048
     Dates: start: 202409
  3. OXAZEPAM [Concomitant]
     Active Substance: OXAZEPAM
  4. LORMETAZEPAM [Concomitant]
     Active Substance: LORMETAZEPAM
  5. TRIMEPRAZINE [Concomitant]
     Active Substance: TRIMEPRAZINE
  6. ZOPICLONE [Concomitant]
     Active Substance: ZOPICLONE
  7. RISPERIDONE [Concomitant]
     Active Substance: RISPERIDONE

REACTIONS (5)
  - Psychotic disorder [Not Recovered/Not Resolved]
  - Anxiety [Not Recovered/Not Resolved]
  - Magnetic resonance imaging head abnormal [Recovering/Resolving]
  - Cognitive disorder [Not Recovered/Not Resolved]
  - Intentional product use issue [Unknown]

NARRATIVE: CASE EVENT DATE: 20241203
